FAERS Safety Report 9227461 (Version 2)
Quarter: 2013Q2

REPORT INFORMATION
  Report Type: Spontaneous
  Country: BR (occurrence: BR)
  Receive Date: 20130412
  Receipt Date: 20130415
  Transmission Date: 20140414
  Serious: Yes (Other)
  Sender: FDA-Public Use
  Company Number: PHHY2013BR034976

PATIENT
  Age: 78 Year
  Sex: Female
  Weight: 70.9 kg

DRUGS (12)
  1. ACLASTA [Suspect]
     Indication: OSTEOPOROSIS
     Dosage: 5 MG, 1 INJECTION PER YEAR
     Route: 042
     Dates: start: 20130401
  2. XEFO [Suspect]
     Indication: PAIN IN EXTREMITY
     Dosage: 1 DF, DAILY
     Route: 048
  3. PURAN T4 [Concomitant]
     Indication: HYPOTHYROIDISM
     Dosage: 75 UG, DAILY
     Route: 048
  4. OLMETEC HCT [Concomitant]
     Indication: HYPERTENSION
     Dosage: 1 DF, DAILY
     Route: 048
  5. ABLOK PLUS [Concomitant]
     Indication: HYPERTENSION
     Dosage: 1 DF, DAILY
     Route: 048
  6. ADDERA D3 [Concomitant]
     Indication: VITAMIN D DECREASED
     Dosage: 16 DRP, DAILY
     Route: 048
  7. OSCAL D                            /00944201/ [Concomitant]
     Indication: OSTEOPOROSIS
     Dosage: 2 DF, DAILY
     Route: 048
  8. CHONDROITIN SULFATE W/GLUCOSAMINE [Concomitant]
     Indication: OSTEOARTHRITIS
     Dosage: 3 DF, DAILY
     Route: 048
  9. NORTRIPTYLINE [Concomitant]
     Indication: DEPRESSION
     Dosage: UNK UKN, UNK
  10. SETRALIN SANDOZ [Concomitant]
     Indication: DEPRESSION
     Dosage: UNK UKN, UNK
  11. RIVOTRIL [Concomitant]
     Indication: DEPRESSION
     Dosage: 1 MG, AT NIGHT (HALF TABLET)
     Route: 048
  12. TRILEPTAL [Concomitant]
     Indication: CONVULSION
     Dosage: 600 MG, DAILY (2 TABLETS)
     Route: 048

REACTIONS (7)
  - Fall [Recovered/Resolved]
  - Blood urea increased [Unknown]
  - Dehydration [Recovering/Resolving]
  - Hypotension [Recovering/Resolving]
  - Renal failure [Recovered/Resolved]
  - Pain [Recovering/Resolving]
  - Blood creatinine increased [Unknown]
